FAERS Safety Report 7625033-3 (Version None)
Quarter: 2011Q3

REPORT INFORMATION
  Report Type: 
  Country: None (occurrence: None)
  Receive Date: 20110721
  Receipt Date: 20110711
  Transmission Date: 20111222
  Serious: No
  Sender: FDA-Public Use
  Company Number: US-BIOGENIDEC-2011BI024644

PATIENT
  Sex: Female

DRUGS (2)
  1. TYSABRI [Suspect]
     Indication: MULTIPLE SCLEROSIS
     Route: 042
     Dates: start: 20110504, end: 20110701
  2. TYSABRI [Suspect]
     Route: 042
     Dates: start: 20090928, end: 20091026

REACTIONS (2)
  - TREMOR [None]
  - HYPERSENSITIVITY [None]
